FAERS Safety Report 6792669-1 (Version None)
Quarter: 2010Q2

REPORT INFORMATION
  Report Type: 
  Country: None (occurrence: None)
  Receive Date: 20100624
  Receipt Date: 20080911
  Transmission Date: 20101027
  Serious: No
  Sender: FDA-Public Use
  Company Number: US-PFIZER INC-2008076644

PATIENT
  Sex: Female

DRUGS (1)
  1. GEODON [Suspect]
     Indication: MANIA

REACTIONS (4)
  - HOT FLUSH [None]
  - INFLUENZA LIKE ILLNESS [None]
  - MALAISE [None]
  - WEIGHT INCREASED [None]
